FAERS Safety Report 5491475-8 (Version None)
Quarter: 2007Q4

REPORT INFORMATION
  Report Type: 
  Country: None (occurrence: None)
  Receive Date: 20071022
  Receipt Date: 20071010
  Transmission Date: 20080405
  Serious: Yes (Other)
  Sender: FDA-Public Use
  Company Number: PHHO2007BE00924

PATIENT
  Age: 58 Year
  Sex: Female
  Weight: 60 kg

DRUGS (3)
  1. EXJADE [Suspect]
     Indication: IRON OVERLOAD
     Dosage: 1500 MG, UNK
     Route: 048
     Dates: start: 20061222, end: 20070108
  2. BONEFOS [Concomitant]
     Dates: start: 20030101, end: 20070108
  3. TOPCAL D3 [Concomitant]
     Dates: start: 20030101, end: 20070108

REACTIONS (9)
  - BLOOD CREATINE PHOSPHOKINASE INCREASED [None]
  - CHEST PAIN [None]
  - GAIT DISTURBANCE [None]
  - HYPOKALAEMIA [None]
  - MYOGLOBIN BLOOD INCREASED [None]
  - RENAL FAILURE [None]
  - RENAL TUBULAR NECROSIS [None]
  - RHABDOMYOLYSIS [None]
  - THROMBOCYTOPENIA [None]
